FAERS Safety Report 8112836-4 (Version None)
Quarter: 2012Q1

REPORT INFORMATION
  Report Type: 
  Country: None (occurrence: None)
  Receive Date: 20120131
  Receipt Date: 20120123
  Transmission Date: 20120608
  Serious: Yes (Hospitalization)
  Sender: FDA-Public Use
  Company Number: 1000026739

PATIENT
  Age: 78 Year
  Sex: Female
  Weight: 70 kg

DRUGS (20)
  1. ASPIRIN [Concomitant]
  2. ZOLPIDEM [Concomitant]
  3. CARAFATE [Concomitant]
  4. SPIRIVA [Concomitant]
  5. DALIRESP [Suspect]
     Indication: CHRONIC OBSTRUCTIVE PULMONARY DISEASE
     Dosage: 500 MCG (500 MCG, 1 IN 1 D), ORAL
     Route: 048
     Dates: start: 20111001, end: 20111214
  6. ALBUTEROL [Concomitant]
  7. PROTONIX (PANTOPRAZOLE SODIUM SESQUIHYDRATE) [Concomitant]
  8. NICOTINE [Concomitant]
  9. MIRALAX [Concomitant]
  10. ALDACTONE [Concomitant]
  11. DILTIAZEM HYDROCHLORIDE [Concomitant]
  12. ATORVASTATIN CALCIUM [Concomitant]
  13. PSYLLIUM [Concomitant]
  14. FAMOTIDINE [Concomitant]
  15. PROVENTIL 9ALBUTEROL) [Concomitant]
  16. LOMOTIL [Concomitant]
  17. FANTANYL (FENTANYL [Concomitant]
  18. COMBIVENT [Concomitant]
  19. ACETAMINOPHEN [Concomitant]
  20. PREDNISONE TAB [Concomitant]

REACTIONS (16)
  - ABASIA [None]
  - WHITE BLOOD CELL COUNT INCREASED [None]
  - BLOOD SODIUM DECREASED [None]
  - UPPER RESPIRATORY TRACT INFECTION [None]
  - GASTRITIS [None]
  - BLOOD POTASSIUM INCREASED [None]
  - BLOOD GLUCOSE INCREASED [None]
  - CHRONIC OBSTRUCTIVE PULMONARY DISEASE [None]
  - ABDOMINAL PAIN [None]
  - DIARRHOEA [None]
  - CHILLS [None]
  - OESOPHAGEAL CANDIDIASIS [None]
  - PANCREATIC ATROPHY [None]
  - URINARY TRACT INFECTION [None]
  - RESPIRATORY RATE INCREASED [None]
  - SCAR [None]
